FAERS Safety Report 5141363-1 (Version None)
Quarter: 2006Q4

REPORT INFORMATION
  Report Type: 
  Country: None (occurrence: None)
  Receive Date: 20061026
  Receipt Date: 20061015
  Transmission Date: 20070319
  Serious: Yes (Hospitalization, Other)
  Sender: FDA-Public Use
  Company Number: 2006126582

PATIENT
  Sex: Female
  Weight: 103.4201 kg

DRUGS (7)
  1. NEURONTIN [Suspect]
     Dosage: 400 MG
  2. LYRICA [Suspect]
     Indication: PAIN
     Dosage: (50 MG, AS NEEDED)
  3. SSRI (SSRI) [Concomitant]
  4. DRUG USED IN DIABETES (DRUG USED IN DIABETES) [Concomitant]
  5. ANTIFUNGALS FOR TOPICAL USE (ANTIFUNGALS FOR TOPICAL USE) [Concomitant]
  6. ALL OTHER THERAPEUTIC PRODUCTS (ALL OTHER THERAPEUTIC PRODUCTS) [Concomitant]
  7. DIURETICS (DIURETICS) [Concomitant]

REACTIONS (8)
  - BLOOD CHLORIDE DECREASED [None]
  - BLOOD CREATINE INCREASED [None]
  - BLOOD SODIUM DECREASED [None]
  - CARBON DIOXIDE DECREASED [None]
  - GLOMERULAR FILTRATION RATE DECREASED [None]
  - HERPES ZOSTER [None]
  - UNEVALUABLE EVENT [None]
  - WHITE BLOOD CELL COUNT INCREASED [None]
